FAERS Safety Report 7464814-6 (Version None)
Quarter: 2011Q2

REPORT INFORMATION
  Report Type: 
  Country: None (occurrence: None)
  Receive Date: 20110509
  Receipt Date: 20110411
  Transmission Date: 20111010
  Serious: Yes (Other)
  Sender: FDA-Public Use
  Company Number: US-BAYER-2011-013535

PATIENT
  Age: 19 Year
  Sex: Female
  Weight: 68.027 kg

DRUGS (2)
  1. YASMIN [Suspect]
     Indication: ACNE
     Dosage: UNK
     Dates: start: 20060201
  2. IBUPROFEN [Concomitant]

REACTIONS (7)
  - INJURY [None]
  - FEAR [None]
  - ANXIETY [None]
  - CHOLECYSTITIS [None]
  - CHOLELITHIASIS [None]
  - PAIN [None]
  - HERNIA [None]
